FAERS Safety Report 6278547-5 (Version None)
Quarter: 2009Q3

REPORT INFORMATION
  Report Type: 
  Country: None (occurrence: None)
  Receive Date: 20090722
  Receipt Date: 20080729
  Transmission Date: 20100115
  Serious: No
  Sender: FDA-Public Use
  Company Number: US-BAUSCH-2008BL003353

PATIENT
  Age: 87 Year
  Sex: Female

DRUGS (6)
  1. OPCON-A [Suspect]
     Indication: OCULAR HYPERAEMIA
     Route: 047
     Dates: start: 20080711, end: 20080711
  2. OPCON-A [Suspect]
     Indication: LACRIMATION INCREASED
     Route: 047
     Dates: start: 20080711, end: 20080711
  3. LANOXIN [Concomitant]
  4. CARDIAZEM /KOR/ [Concomitant]
  5. LIPITOR [Concomitant]
  6. BENICAR                                 /USA/ [Concomitant]

REACTIONS (2)
  - DRUG INEFFECTIVE [None]
  - EYE IRRITATION [None]
